FAERS Safety Report 24418835 (Version 1)
Quarter: 2024Q4

REPORT INFORMATION
  Report Type: Spontaneous
  Country: JP (occurrence: None)
  Receive Date: 20241009
  Receipt Date: 20241009
  Transmission Date: 20250115
  Serious: Yes (Hospitalization)
  Sender: UNICHEM
  Company Number: JP-Unichem Pharmaceuticals (USA) Inc-UCM202410-001326

PATIENT
  Age: 23 Year
  Sex: Female

DRUGS (1)
  1. VALSARTAN [Suspect]
     Active Substance: VALSARTAN
     Indication: Product used for unknown indication
     Dosage: 22 TABLETS

REACTIONS (4)
  - Agitation [Unknown]
  - Heart rate increased [Unknown]
  - Intentional overdose [Unknown]
  - Exposure during pregnancy [Unknown]
